FAERS Safety Report 11933372 (Version 1)
Quarter: 2016Q1

REPORT INFORMATION
  Report Type: Spontaneous
  Country: SE (occurrence: SE)
  Receive Date: 20160121
  Receipt Date: 20160121
  Transmission Date: 20160526
  Serious: Yes (Hospitalization)
  Sender: FDA-Public Use
  Company Number: SE-ASTRAZENECA-2016SE03657

PATIENT
  Age: 46 Year
  Sex: Female

DRUGS (4)
  1. OXIS [Suspect]
     Active Substance: FORMOTEROL FUMARATE
     Indication: ASTHMA
     Route: 055
     Dates: start: 201509, end: 20151220
  2. PULMICORT TURBUHALER [Suspect]
     Active Substance: BUDESONIDE
     Indication: ASTHMA
     Dosage: TWO TIMES A DAY
     Route: 055
     Dates: start: 201507
  3. PULMICORT TURBUHALER [Suspect]
     Active Substance: BUDESONIDE
     Indication: ASTHMA
     Route: 055
  4. BRICANYL [Concomitant]
     Active Substance: TERBUTALINE SULFATE
     Dosage: AS REQUIRED
     Dates: start: 20151202

REACTIONS (6)
  - Muscle spasms [Recovered/Resolved]
  - Nausea [Recovered/Resolved]
  - Somnolence [Recovered/Resolved]
  - Pharyngeal oedema [Recovered/Resolved]
  - Dysphagia [Recovered/Resolved]
  - Insomnia [Recovered/Resolved]

NARRATIVE: CASE EVENT DATE: 201509
